FAERS Safety Report 6338880-5 (Version None)
Quarter: 2009Q3

REPORT INFORMATION
  Report Type: 
  Country: None (occurrence: None)
  Receive Date: 20090903
  Receipt Date: 20090825
  Transmission Date: 20100115
  Serious: Yes (Other)
  Sender: FDA-Public Use
  Company Number: PHHY2009BR36489

PATIENT
  Sex: Male

DRUGS (3)
  1. TRILEPTAL [Suspect]
     Indication: DECREASED ACTIVITY
     Dosage: 7 ML DAILY
     Route: 048
  2. TRILEPTAL [Suspect]
     Dosage: ALL THE CONTENT OF THE BOTTLE MINUS 49 ML
     Dates: start: 20090825
  3. RISPERIDONE [Concomitant]
     Indication: AUTISM
     Dosage: 1 MG, BID
     Route: 048

REACTIONS (4)
  - AGITATION [None]
  - INCORRECT DOSE ADMINISTERED [None]
  - SOMNOLENCE [None]
  - VOMITING [None]
